FAERS Safety Report 6999766-6 (Version None)
Quarter: 2010Q3

REPORT INFORMATION
  Report Type: 
  Country: None (occurrence: None)
  Receive Date: 20100920
  Receipt Date: 20100616
  Transmission Date: 20110219
  Serious: No
  Sender: FDA-Public Use
  Company Number: US-ASTRAZENECA-2010SE28210

PATIENT
  Age: 19 Year
  Sex: Female

DRUGS (3)
  1. SEROQUEL XR [Suspect]
     Indication: DEPRESSION
     Route: 048
  2. SEROQUEL XR [Suspect]
     Indication: ANXIETY
     Route: 048
  3. LEXAPRO [Concomitant]
     Indication: DEPRESSION

REACTIONS (1)
  - URINARY HESITATION [None]
